FAERS Safety Report 5715950-3 (Version None)
Quarter: 2008Q2

REPORT INFORMATION
  Report Type: 
  Country: None (occurrence: None)
  Receive Date: 20080424
  Receipt Date: 20080416
  Transmission Date: 20081010
  Serious: Yes (Other)
  Sender: FDA-Public Use
  Company Number: TR-TEVA-170432ISR

PATIENT
  Age: 75 Year
  Sex: Female

DRUGS (7)
  1. TAMOXIFEN [Suspect]
     Indication: BREAST CANCER
  2. MITOMYCIN [Concomitant]
     Indication: GASTRIC CANCER
  3. MITOMYCIN [Concomitant]
  4. DOXORUBICIN HCL [Concomitant]
     Indication: GASTRIC CANCER
  5. DOXORUBICIN HCL [Concomitant]
  6. FLUOROURACIL [Concomitant]
     Indication: GASTRIC CANCER
  7. FLUOROURACIL [Concomitant]

REACTIONS (3)
  - ADENOCARCINOMA OF THE CERVIX [None]
  - ENDOMETRIAL CANCER STAGE I [None]
  - GASTRIC CANCER [None]
